FAERS Safety Report 7512892-8 (Version None)
Quarter: 2011Q2

REPORT INFORMATION
  Report Type: 
  Country: None (occurrence: None)
  Receive Date: 20110531
  Receipt Date: 20110517
  Transmission Date: 20111010
  Serious: Yes (Hospitalization)
  Sender: FDA-Public Use
  Company Number: US-JNJFOC-20110507816

PATIENT
  Sex: Female
  Weight: 49.9 kg

DRUGS (5)
  1. RANITIDINE [Concomitant]
     Indication: PROPHYLAXIS
     Route: 048
  2. FOLIC ACID [Concomitant]
     Indication: NUTRITIONAL SUPPORT
     Route: 048
  3. REMICADE [Suspect]
     Indication: PSORIATIC ARTHROPATHY
     Route: 042
  4. SIMVASTATIN [Concomitant]
     Indication: BLOOD CHOLESTEROL INCREASED
     Route: 048
  5. CITALOPRAM [Concomitant]
     Indication: ANTIDEPRESSANT THERAPY
     Route: 048

REACTIONS (4)
  - PSORIASIS [None]
  - TOOTH ABSCESS [None]
  - MENINGITIS HERPES [None]
  - ADVERSE EVENT [None]
